FAERS Safety Report 25738819 (Version 1)
Quarter: 2025Q3

REPORT INFORMATION
  Report Type: Spontaneous
  Country: US (occurrence: US)
  Receive Date: 20250829
  Receipt Date: 20250829
  Transmission Date: 20251021
  Serious: No
  Sender: TAMARANG PHARMACEUTICALS
  Company Number: US-Tamarang, S.A.-2183443

PATIENT
  Age: 70 Year
  Sex: Male

DRUGS (2)
  1. ROCURONIUM BROMIDE [Suspect]
     Active Substance: ROCURONIUM BROMIDE
     Indication: Endotracheal intubation
  2. ROCURONIUM BROMIDE [Suspect]
     Active Substance: ROCURONIUM BROMIDE
     Indication: Neuromuscular blockade

REACTIONS (1)
  - Drug ineffective [Recovered/Resolved]
